FAERS Safety Report 20867591 (Version 1)
Quarter: 2022Q2

REPORT INFORMATION
  Report Type: Spontaneous
  Country: US (occurrence: None)
  Receive Date: 20220524
  Receipt Date: 20220524
  Transmission Date: 20220720
  Serious: No
  Sender: FDA-Public Use
  Company Number: None

PATIENT
  Age: 69 Year
  Sex: Female
  Weight: 127.01 kg

DRUGS (17)
  1. IBRANCE [Suspect]
     Active Substance: PALBOCICLIB
     Indication: Breast cancer female
     Dosage: OTHER FREQUENCY : 21DON7DOFF;?
     Route: 048
  2. ASPIRIN [Concomitant]
  3. CARVEDILOL [Concomitant]
     Active Substance: CARVEDILOL
  4. CYANOCOBALALMIN [Concomitant]
  5. GLIMEPIRIDE [Concomitant]
  6. LETROZOLE [Concomitant]
  7. METFORMIN [Concomitant]
  8. NAPROXEN [Concomitant]
  9. NYSTATIN [Concomitant]
  10. OMEPRAZOLE [Concomitant]
  11. RAMIPRIL [Concomitant]
  12. SIMVASTATIN [Concomitant]
  13. TRADJENTA [Concomitant]
  14. TRIAMCINOLONE [Concomitant]
  15. VITAMIN C [Concomitant]
  16. VITAMIN D [Concomitant]
  17. XGEVA [Concomitant]

REACTIONS (1)
  - Disease progression [None]
